FAERS Safety Report 9026625 (Version 1)
Quarter: 2013Q1

REPORT INFORMATION
  Report Type: Spontaneous
  Country: US (occurrence: None)
  Receive Date: 20130114
  Receipt Date: 20130114
  Transmission Date: 20140127
  Serious: Yes (Other)
  Sender: FDA-Public Use
  Company Number: None

PATIENT
  Sex: Female
  Weight: 46.27 kg

DRUGS (1)
  1. RIFAMPIN [Suspect]
     Indication: TUBERCULOSIS
     Dosage: 2 PILLS IN AM ONCE A DAY X 2 MOUTH
     Route: 048
     Dates: start: 20121012, end: 20121120

REACTIONS (1)
  - Haematochezia [None]
